FAERS Safety Report 26092271 (Version 3)
Quarter: 2025Q4

REPORT INFORMATION
  Report Type: Spontaneous
  Country: EU (occurrence: EU)
  Receive Date: 20251126
  Receipt Date: 20251212
  Transmission Date: 20260118
  Serious: Yes (Other)
  Sender: SANDOZ
  Company Number: EU-002147023-NVSC2025IT181067

PATIENT
  Age: 80 Year
  Sex: Female

DRUGS (2)
  1. ANASTROZOLE [Suspect]
     Active Substance: ANASTROZOLE
     Indication: Hormone receptor positive HER2 negative breast cancer
     Dosage: 1 MG
     Route: 065
     Dates: start: 202403
  2. RIBOCICLIB [Suspect]
     Active Substance: RIBOCICLIB
     Indication: Hormone receptor positive HER2 negative breast cancer
     Dosage: 600 MG, QD (DAY1-21 EVERY 28 DAYS)
     Route: 065
     Dates: start: 202403

REACTIONS (4)
  - Neutropenia [Recovered/Resolved]
  - Leukopenia [Unknown]
  - Asthenia [Recovered/Resolved]
  - Nausea [Recovered/Resolved]
